FAERS Safety Report 17714505 (Version 1)
Quarter: 2020Q2

REPORT INFORMATION
  Report Type: Spontaneous
  Country: AU (occurrence: AU)
  Receive Date: 20200427
  Receipt Date: 20200427
  Transmission Date: 20200714
  Serious: Yes (Hospitalization, Other)
  Sender: FDA-Public Use
  Company Number: NVSC2020AU106341

PATIENT
  Sex: Male

DRUGS (3)
  1. FENTANYL. [Interacting]
     Active Substance: FENTANYL
     Indication: PAIN
     Dosage: UNK
     Route: 065
  2. FENTANYL. [Interacting]
     Active Substance: FENTANYL
     Indication: ANKYLOSING SPONDYLITIS
  3. COSENTYX [Suspect]
     Active Substance: SECUKINUMAB
     Indication: ANKYLOSING SPONDYLITIS
     Dosage: UNK
     Route: 065

REACTIONS (12)
  - Wrong technique in product usage process [Unknown]
  - Drug dependence [Unknown]
  - Constipation [Unknown]
  - Fatigue [Unknown]
  - Fear [Unknown]
  - Posture abnormal [Unknown]
  - Pain [Recovered/Resolved]
  - Joint swelling [Unknown]
  - Anxiety [Unknown]
  - Diarrhoea [Unknown]
  - Hypokinesia [Unknown]
  - Nausea [Unknown]
